FAERS Safety Report 7808731-8 (Version None)
Quarter: 2011Q4

REPORT INFORMATION
  Report Type: 
  Country: None (occurrence: None)
  Receive Date: 20111007
  Receipt Date: 20110827
  Transmission Date: 20120403
  Serious: Yes (Life-Threatening)
  Sender: FDA-Public Use
  Company Number: 2011MA014473

PATIENT
  Age: 16 Year
  Sex: Female

DRUGS (4)
  1. GABAPENTIN [Suspect]
  2. AMITRIPTYLINE HCL [Suspect]
  3. CYCLOBENZAPRINE [Suspect]
  4. OXYCONTIN [Suspect]

REACTIONS (2)
  - SUICIDE ATTEMPT [None]
  - MULTIPLE DRUG OVERDOSE INTENTIONAL [None]
